FAERS Safety Report 10815202 (Version 3)
Quarter: 2015Q4

REPORT INFORMATION
  Report Type: Report from Study
  Country: US (occurrence: US)
  Receive Date: 20150218
  Receipt Date: 20151104
  Transmission Date: 20160304
  Serious: Yes (Death, Other)
  Sender: FDA-Public Use
  Company Number: US-CELGENE-USA-2015022397

PATIENT

DRUGS (4)
  1. RITUXIMAB [Suspect]
     Active Substance: RITUXIMAB
     Indication: NON-HODGKIN^S LYMPHOMA
     Route: 041
  2. REVLIMID [Suspect]
     Active Substance: LENALIDOMIDE
     Indication: NON-HODGKIN^S LYMPHOMA
     Route: 048
  3. RITUXIMAB [Suspect]
     Active Substance: RITUXIMAB
     Route: 041
  4. REVLIMID [Suspect]
     Active Substance: LENALIDOMIDE
     Route: 048

REACTIONS (19)
  - Infusion related reaction [Unknown]
  - Cough [Unknown]
  - Oedema [Unknown]
  - Constipation [Unknown]
  - Upper respiratory tract infection [Unknown]
  - Neuropathy peripheral [Unknown]
  - Death [Fatal]
  - Fatigue [Unknown]
  - Myalgia [Unknown]
  - Anaemia [Unknown]
  - Febrile neutropenia [Unknown]
  - Nausea [Unknown]
  - Vomiting [Unknown]
  - Rash [Unknown]
  - Eye irritation [Unknown]
  - Mucosal inflammation [Unknown]
  - Plasma cell myeloma [Unknown]
  - Thyroid disorder [Unknown]
  - Non-Hodgkin^s lymphoma [Unknown]
